FAERS Safety Report 9256752 (Version 2)
Quarter: 2013Q4

REPORT INFORMATION
  Report Type: Report from Study
  Country: JP (occurrence: JP)
  Receive Date: 20130426
  Receipt Date: 20131126
  Transmission Date: 20140711
  Serious: Yes (Hospitalization)
  Sender: FDA-Public Use
  Company Number: JP-ROCHE-1217100

PATIENT
  Age: 52 Year
  Sex: Male
  Weight: 59 kg

DRUGS (17)
  1. METHOXY POLYETHYLENE GLYCOL-EPOETIN BETA [Suspect]
     Indication: NEPHROGENIC ANAEMIA
     Route: 058
     Dates: start: 20120412, end: 20120628
  2. METHOXY POLYETHYLENE GLYCOL-EPOETIN BETA [Suspect]
     Indication: NEPHROGENIC ANAEMIA
     Route: 058
     Dates: start: 20120726, end: 20121018
  3. DIANEAL [Concomitant]
     Indication: GLOMERULONEPHRITIS CHRONIC
     Route: 033
     Dates: end: 20121024
  4. DIANEAL [Concomitant]
     Route: 033
     Dates: end: 20121024
  5. PERSANTIN [Concomitant]
     Route: 048
  6. CALBLOCK [Concomitant]
     Route: 048
  7. CALBLOCK [Concomitant]
     Route: 048
     Dates: start: 20120628
  8. ARTIST [Concomitant]
     Route: 048
  9. CRESTOR [Concomitant]
     Route: 048
  10. CALTAN [Concomitant]
     Route: 048
  11. FOSRENOL [Concomitant]
     Route: 048
  12. FESIN (JAPAN) [Concomitant]
     Indication: PROPHYLAXIS
     Route: 042
     Dates: start: 20120530, end: 20120920
  13. BETAMIPRON/PANIPENEM [Concomitant]
     Indication: PROPHYLAXIS
     Route: 042
     Dates: start: 20121009, end: 20121017
  14. CINACALCET HYDROCHLORIDE [Concomitant]
     Route: 048
     Dates: end: 20120529
  15. CINACALCET HYDROCHLORIDE [Concomitant]
     Route: 048
     Dates: start: 20120530
  16. AMLODIPINE BESILATE/TELMISARTAN [Concomitant]
     Route: 048
  17. CEFAZOLIN SODIUM [Concomitant]
     Indication: PROPHYLAXIS
     Route: 042
     Dates: start: 20121002, end: 20121009

REACTIONS (2)
  - Peritonitis [Recovered/Resolved]
  - Anaemia [Not Recovered/Not Resolved]
